FAERS Safety Report 6211831-X (Version None)
Quarter: 2009Q2

REPORT INFORMATION
  Report Type: 
  Country: None (occurrence: None)
  Receive Date: 20090602
  Receipt Date: 20090528
  Transmission Date: 20091009
  Serious: Yes (Hospitalization)
  Sender: FDA-Public Use
  Company Number: US-ASTRAZENECA-2009UW13616

PATIENT
  Age: 13623 Day
  Sex: Male
  Weight: 96.6 kg

DRUGS (7)
  1. SEROQUEL [Suspect]
     Indication: DEPRESSION
     Dosage: 150 MG, 200 MG
     Route: 048
     Dates: start: 19960101, end: 19990101
  2. SEROQUEL [Suspect]
     Indication: ANXIETY
     Dosage: 150 MG, 200 MG
     Route: 048
     Dates: start: 19960101, end: 19990101
  3. ABILIFY [Concomitant]
     Dates: start: 20030101, end: 20060101
  4. GEODON [Concomitant]
     Dates: start: 20030101, end: 20060101
  5. HALDOL [Concomitant]
     Dosage: 20 MG TO 50 MG
  6. RISPERDAL [Concomitant]
     Dates: start: 20050101
  7. ZYPREXA [Concomitant]
     Dates: start: 19940101, end: 19950101

REACTIONS (5)
  - BLOOD CHOLESTEROL INCREASED [None]
  - HYPERTENSION [None]
  - MUSCULOSKELETAL DISORDER [None]
  - PLASTIC SURGERY [None]
  - TYPE 2 DIABETES MELLITUS [None]
